FAERS Safety Report 9448850 (Version 1)
Quarter: 2013Q3

REPORT INFORMATION
  Report Type: Spontaneous
  Country: IT (occurrence: None)
  Receive Date: 20130806
  Receipt Date: 20130806
  Transmission Date: 20140515
  Serious: Yes (Hospitalization)
  Sender: FDA-Public Use
  Company Number: GER/ITL/13/0033581

PATIENT
  Age: 81 Year
  Sex: Male
  Weight: 65 kg

DRUGS (3)
  1. OLANZAPINE (OLANZAPINE) [Suspect]
     Route: 048
  2. TEGRETOL (CARBAMAZEPINE) [Concomitant]
  3. METFORMIN (METFORMIN) [Concomitant]

REACTIONS (4)
  - Asthenia [None]
  - Bradykinesia [None]
  - Speech disorder [None]
  - Sopor [None]
